FAERS Safety Report 23985304 (Version 1)
Quarter: 2024Q2

REPORT INFORMATION
  Report Type: Other
  Country: CA (occurrence: CA)
  Receive Date: 20240618
  Receipt Date: 20240618
  Transmission Date: 20240716
  Serious: Yes (Other)
  Sender: FDA-Public Use
  Company Number: CA-APOTEX-2024AP007212

PATIENT
  Age: 57 Year
  Sex: Male

DRUGS (6)
  1. FLUTICASONE [Interacting]
     Active Substance: FLUTICASONE
     Indication: Product used for unknown indication
     Dosage: UNK
     Route: 065
  2. NORVIR [Interacting]
     Active Substance: RITONAVIR
     Indication: Product used for unknown indication
     Dosage: 100 MILLIGRAM, BID
     Route: 065
  3. DARUNAVIR [Concomitant]
     Active Substance: DARUNAVIR
     Indication: Product used for unknown indication
     Dosage: UNK
     Route: 048
  4. INTELENCE [Concomitant]
     Active Substance: ETRAVIRINE
     Indication: Product used for unknown indication
     Dosage: UNK
     Route: 065
  5. ISENTRESS [Concomitant]
     Active Substance: RALTEGRAVIR POTASSIUM
     Indication: Product used for unknown indication
     Dosage: UNK
     Route: 065
  6. MELOXICAM [Concomitant]
     Active Substance: MELOXICAM
     Indication: Product used for unknown indication
     Dosage: UNK
     Route: 065

REACTIONS (10)
  - Addison^s disease [Unknown]
  - Adrenal insufficiency [Unknown]
  - Fatigue [Unknown]
  - Hyperhidrosis [Unknown]
  - Malaise [Unknown]
  - Myalgia [Unknown]
  - Diarrhoea [Unknown]
  - Headache [Unknown]
  - Drug interaction [Unknown]
  - Adrenal suppression [Unknown]
